FAERS Safety Report 5154708-3 (Version None)
Quarter: 2006Q4

REPORT INFORMATION
  Report Type: 
  Country: None (occurrence: None)
  Receive Date: 20061116
  Receipt Date: 20061116
  Transmission Date: 20070319
  Serious: No
  Sender: FDA-Public Use
  Company Number: None

PATIENT
  Age: 45 Year
  Sex: Male
  Weight: 66.7 kg

DRUGS (2)
  1. FLUPHENAZINE [Suspect]
     Indication: PSYCHOTIC DISORDER
     Dosage: BID PO
     Route: 048
     Dates: start: 20060703, end: 20060704
  2. RISPERIDONE [Concomitant]

REACTIONS (3)
  - DYSKINESIA [None]
  - DYSTONIA [None]
  - OROPHARYNGEAL SPASM [None]
